FAERS Safety Report 7568209-6 (Version None)
Quarter: 2011Q2

REPORT INFORMATION
  Report Type: 
  Country: None (occurrence: None)
  Receive Date: 20110617
  Receipt Date: 20110606
  Transmission Date: 20111010
  Serious: Yes (Hospitalization)
  Sender: FDA-Public Use
  Company Number: 945927

PATIENT
  Age: 51 Year
  Sex: Male

DRUGS (4)
  1. VANCOMYCIN HYCHLORIDE [Suspect]
     Indication: STAPHYLOCOCCAL INFECTION
     Dosage: (2 GRAMS DAILY) INTRAVENOUS DRIP ; (2 GRAMS DAILY) INTRAVENOUS DRIP
     Route: 041
  2. VANCOMYCIN HYCHLORIDE [Suspect]
     Indication: STAPHYLOCOCCAL INFECTION
     Dosage: (2 GRAMS DAILY) INTRAVENOUS DRIP ; (2 GRAMS DAILY) INTRAVENOUS DRIP
     Route: 041
  3. GENTAMICIN SULFATE [Suspect]
     Indication: OSTEOMYELITIS
  4. GENTAMICIN SULFATE [Suspect]
     Indication: OSTEOMYELITIS

REACTIONS (4)
  - RENAL FAILURE ACUTE [None]
  - RASH [None]
  - BLOOD PRESSURE DECREASED [None]
  - TUBULOINTERSTITIAL NEPHRITIS [None]
